FAERS Safety Report 6966342-0 (Version None)
Quarter: 2010Q3

REPORT INFORMATION
  Report Type: 
  Country: None (occurrence: None)
  Receive Date: 20100903
  Receipt Date: 20100826
  Transmission Date: 20110219
  Serious: Yes (Hospitalization)
  Sender: FDA-Public Use
  Company Number: IE-ROCHE-715995

PATIENT
  Sex: Male
  Weight: 57.3 kg

DRUGS (8)
  1. ROACTEMRA [Suspect]
     Indication: RHEUMATOID ARTHRITIS
     Route: 042
     Dates: start: 20100219
  2. NEORECORMON [Concomitant]
     Indication: ANAEMIA
     Dosage: WEEKLY.
  3. LANSOPRAZOLE [Concomitant]
     Route: 048
  4. ELTROXIN [Concomitant]
     Indication: HYPOTHYROIDISM
     Route: 048
  5. METOPROLOL TARTRATE [Concomitant]
     Indication: ATRIAL FIBRILLATION
     Route: 048
  6. PREDNISOLONE [Concomitant]
     Indication: RHEUMATOID ARTHRITIS
     Route: 048
  7. IDEOS [Concomitant]
     Indication: PROPHYLAXIS
     Route: 048
  8. ASPIRIN [Concomitant]
     Route: 048

REACTIONS (1)
  - MUSCLE ATROPHY [None]
